FAERS Safety Report 11589902 (Version 2)
Quarter: 2015Q4

REPORT INFORMATION
  Report Type: Spontaneous
  Country: BE (occurrence: BE)
  Receive Date: 20151002
  Receipt Date: 20151120
  Transmission Date: 20160304
  Serious: Yes (Disabling, Other)
  Sender: FDA-Public Use
  Company Number: BE-009507513-1509BEL004202

PATIENT
  Age: 36 Year
  Sex: Female
  Weight: 57 kg

DRUGS (8)
  1. NEXIAM [Concomitant]
     Active Substance: ESOMEPRAZOLE
     Dosage: UNK, PRN
     Route: 048
  2. IMPLANON [Suspect]
     Active Substance: ETONOGESTREL
     Dosage: UNK
     Route: 059
     Dates: start: 2007, end: 20100826
  3. IBUPROFEN. [Concomitant]
     Active Substance: IBUPROFEN
     Dosage: UNK, PRN
     Route: 048
  4. DAFALGAN [Concomitant]
     Active Substance: ACETAMINOPHEN
     Dosage: UNK
     Route: 048
  5. IMPLANON [Suspect]
     Active Substance: ETONOGESTREL
     Dosage: UNK
     Route: 059
     Dates: start: 20100826, end: 20130803
  6. CALCIUM (UNSPECIFIED) (+) VITAMIN D (UNSPECIFIED) [Concomitant]
     Active Substance: CALCIUM CARBONATE\VITAMIN D
     Dosage: UNK
     Route: 048
  7. TRAZODONE [Concomitant]
     Active Substance: TRAZODONE HYDROCHLORIDE
     Dosage: TOTAL DAILY DOSE: 1/2 DF
     Route: 048
  8. IMPLANON [Suspect]
     Active Substance: ETONOGESTREL
     Dosage: UNK
     Route: 059
     Dates: start: 20130803

REACTIONS (11)
  - Fractured coccyx [Unknown]
  - Complex regional pain syndrome [Unknown]
  - Amenorrhoea [Unknown]
  - Osteonecrosis [Unknown]
  - Avulsion fracture [Unknown]
  - Stress fracture [Not Recovered/Not Resolved]
  - Foot fracture [Unknown]
  - Osteopenia [Not Recovered/Not Resolved]
  - Vaginal haemorrhage [Not Recovered/Not Resolved]
  - Rotator cuff syndrome [Unknown]
  - Osteoporosis [Not Recovered/Not Resolved]

NARRATIVE: CASE EVENT DATE: 2010
